FAERS Safety Report 8371601-3 (Version None)
Quarter: 2012Q2

REPORT INFORMATION
  Report Type: 
  Country: None (occurrence: None)
  Receive Date: 20120518
  Receipt Date: 20120508
  Transmission Date: 20120825
  Serious: No
  Sender: FDA-Public Use
  Company Number: US-ASTRAZENECA-2012SE28646

PATIENT
  Age: 53 Year
  Sex: Female

DRUGS (1)
  1. SEROQUEL [Suspect]
     Route: 048

REACTIONS (6)
  - SPEECH DISORDER [None]
  - NAUSEA [None]
  - DRUG DISPENSING ERROR [None]
  - TONGUE PARALYSIS [None]
  - SWOLLEN TONGUE [None]
  - TONGUE DRY [None]
